FAERS Safety Report 12969780 (Version 1)
Quarter: 2016Q4

REPORT INFORMATION
  Report Type: Spontaneous
  Country: DE (occurrence: DE)
  Receive Date: 20161123
  Receipt Date: 20161123
  Transmission Date: 20170207
  Serious: Yes (Other)
  Sender: FDA-Public Use
  Company Number: DE-BAYER-2016-222363

PATIENT
  Age: 55 Year
  Sex: Male

DRUGS (1)
  1. CIPROBAY [Suspect]
     Active Substance: CIPROFLOXACIN
     Indication: URINARY TRACT INFECTION
     Dosage: 250 MG, BID
     Dates: start: 201605

REACTIONS (7)
  - Gait disturbance [None]
  - Malaise [None]
  - Paraesthesia [None]
  - Groin pain [None]
  - Musculoskeletal pain [None]
  - Pain in extremity [None]
  - Pain [None]
